FAERS Safety Report 24911618 (Version 2)
Quarter: 2025Q1

REPORT INFORMATION
  Report Type: Spontaneous
  Country: AR (occurrence: AR)
  Receive Date: 20250131
  Receipt Date: 20250204
  Transmission Date: 20250409
  Serious: Yes (Hospitalization, Other)
  Sender: PFIZER
  Company Number: AR-PFIZER INC-PV202500012140

PATIENT
  Age: 22 Year
  Sex: Male

DRUGS (1)
  1. MYLOTARG [Suspect]
     Active Substance: GEMTUZUMAB OZOGAMICIN

REACTIONS (2)
  - Pyrexia [Unknown]
  - Haematemesis [Unknown]

NARRATIVE: CASE EVENT DATE: 20241220
